FAERS Safety Report 15570718 (Version 1)
Quarter: 2018Q4

REPORT INFORMATION
  Report Type: Report from Study
  Country: CA (occurrence: CA)
  Receive Date: 20181031
  Receipt Date: 20181031
  Transmission Date: 20190205
  Serious: Yes (Hospitalization, Other)
  Sender: FDA-Public Use
  Company Number: PHHY2015CA067206

PATIENT
  Age: 46 Year
  Sex: Female

DRUGS (10)
  1. PROVERA [Concomitant]
     Active Substance: MEDROXYPROGESTERONE ACETATE
     Indication: PRODUCT USED FOR UNKNOWN INDICATION
     Dosage: 10 MG, QD
     Route: 065
  2. VITAMIN D [Suspect]
     Active Substance: CHOLECALCIFEROL
     Indication: PRODUCT USED FOR UNKNOWN INDICATION
     Dosage: 10000 OT (UI), QW
     Route: 065
  3. SOMAVERT [Concomitant]
     Active Substance: PEGVISOMANT
     Dosage: 20 MG, QD
     Route: 065
  4. SOMAVERT [Concomitant]
     Active Substance: PEGVISOMANT
     Dosage: 10 MG, QW3
     Route: 065
     Dates: start: 2016
  5. SANDOSTATIN LAR DEPOT [Suspect]
     Active Substance: OCTREOTIDE ACETATE
     Dosage: 30 MG, QMO (ONCE A MONTH)
     Route: 030
     Dates: start: 20140704
  6. ESTRADOT [Suspect]
     Active Substance: ESTRADIOL
     Indication: PRODUCT USED FOR UNKNOWN INDICATION
     Dosage: 25 UG, Q2W
     Route: 065
  7. SYNTHROID [Concomitant]
     Active Substance: LEVOTHYROXINE SODIUM
     Dosage: 3.175 MG, UNK
     Route: 065
  8. SOMAVERT [Concomitant]
     Active Substance: PEGVISOMANT
     Indication: PRODUCT USED FOR UNKNOWN INDICATION
     Dosage: 20 MG, QW4
     Route: 065
     Dates: start: 2016
  9. SANDOSTATIN LAR DEPOT [Suspect]
     Active Substance: OCTREOTIDE ACETATE
     Indication: ACROMEGALY
     Dosage: 30 MG, QMO (ONCE A MONTH)
     Route: 030
     Dates: start: 199810
  10. SYNTHROID [Concomitant]
     Active Substance: LEVOTHYROXINE SODIUM
     Indication: PRODUCT USED FOR UNKNOWN INDICATION
     Dosage: 0.2 MG, BID
     Route: 065

REACTIONS (10)
  - Diarrhoea [Unknown]
  - Drug ineffective [Unknown]
  - Bronchitis viral [Unknown]
  - Headache [Unknown]
  - Needle issue [Unknown]
  - Neoplasm progression [Unknown]
  - Injection site pain [Unknown]
  - Diverticulitis [Unknown]
  - Brain neoplasm [Unknown]
  - Depression [Unknown]

NARRATIVE: CASE EVENT DATE: 201505
